FAERS Safety Report 7088593-X (Version None)
Quarter: 2010Q4

REPORT INFORMATION
  Report Type: 
  Country: None (occurrence: None)
  Receive Date: 20101029
  Receipt Date: 20101014
  Transmission Date: 20110411
  Serious: Yes (Other)
  Sender: FDA-Public Use
  Company Number: ACO_01751_2010

PATIENT
  Sex: Female
  Weight: 65.7716 kg

DRUGS (4)
  1. AMPRYA 10 MG [Suspect]
     Indication: GAIT DISTURBANCE
     Dosage: (10 MG BID ORAL)
     Route: 048
     Dates: start: 20100808
  2. WELLBUTRIN [Concomitant]
  3. DEPLIN [Concomitant]
  4. COZAAR [Concomitant]

REACTIONS (7)
  - DRUG EFFECT DECREASED [None]
  - DYSPHAGIA [None]
  - DYSPNOEA [None]
  - LYMPHADENOPATHY [None]
  - MALAISE [None]
  - MYALGIA [None]
  - OROPHARYNGEAL PAIN [None]
